FAERS Safety Report 24827697 (Version 1)
Quarter: 2025Q1

REPORT INFORMATION
  Report Type: Spontaneous
  Country: IL (occurrence: IL)
  Receive Date: 20250109
  Receipt Date: 20250109
  Transmission Date: 20250408
  Serious: No
  Sender: JAZZ
  Company Number: IL-PHARMAMAR-2024PM000617

PATIENT
  Age: 63 Year
  Sex: Female

DRUGS (11)
  1. ZEPZELCA [Suspect]
     Active Substance: LURBINECTEDIN
     Indication: Product used for unknown indication
     Dates: start: 202108
  2. ZEPZELCA [Suspect]
     Active Substance: LURBINECTEDIN
     Dosage: 4.07 MILLIGRAM, Q3W
  3. ZEPZELCA [Suspect]
     Active Substance: LURBINECTEDIN
  4. PREDNISONE [Concomitant]
     Active Substance: PREDNISONE
     Indication: Pituitary-dependent Cushing^s syndrome
     Dates: start: 2017
  5. PREDNISONE [Concomitant]
     Active Substance: PREDNISONE
  6. PREDNISONE [Concomitant]
     Active Substance: PREDNISONE
  7. PREDNISONE [Concomitant]
     Active Substance: PREDNISONE
  8. NEXIUM I.V. [Concomitant]
     Active Substance: ESOMEPRAZOLE SODIUM
  9. ALOE VERA LEAF [Concomitant]
     Active Substance: ALOE VERA LEAF
     Indication: Constipation
  10. DENSITY [Concomitant]
  11. DANDELION [Concomitant]
     Active Substance: TARAXACUM OFFICINALE POLLEN

REACTIONS (8)
  - Paraesthesia [Unknown]
  - Eye pain [Unknown]
  - Pain in extremity [Unknown]
  - Nausea [Unknown]
  - Vomiting [Unknown]
  - Skin atrophy [Not Recovered/Not Resolved]
  - Skin discolouration [Not Recovered/Not Resolved]
  - Muscle strain [Not Recovered/Not Resolved]

NARRATIVE: CASE EVENT DATE: 20240101
